FAERS Safety Report 19963512 (Version 1)
Quarter: 2021Q4

REPORT INFORMATION
  Report Type: Spontaneous
  Country: US (occurrence: US)
  Receive Date: 20211017
  Receipt Date: 20211017
  Transmission Date: 20220304
  Serious: Yes (Other)
  Sender: FDA-Public Use
  Company Number: None

PATIENT
  Age: 70 Year
  Sex: Female
  Weight: 126 kg

DRUGS (13)
  1. FLUOXETINE [Suspect]
     Active Substance: FLUOXETINE HYDROCHLORIDE
     Indication: Depression
     Dosage: ?          QUANTITY:2 CAPSULE(S);
     Route: 048
  2. ATORVASTATIN [Concomitant]
     Active Substance: ATORVASTATIN
  3. CARVEDILOL [Concomitant]
     Active Substance: CARVEDILOL
  4. LISINOPRIL [Concomitant]
     Active Substance: LISINOPRIL
  5. LATANOPROST [Concomitant]
     Active Substance: LATANOPROST
  6. ROPINIROLE [Concomitant]
     Active Substance: ROPINIROLE
  7. GABAPENTIN [Concomitant]
     Active Substance: GABAPENTIN
  8. TIMOLOL [Concomitant]
     Active Substance: TIMOLOL
  9. PREGABALIN [Concomitant]
     Active Substance: PREGABALIN
  10. LANSOPRAZOLE [Concomitant]
     Active Substance: LANSOPRAZOLE
  11. VITAMIN B12 [Concomitant]
     Active Substance: CYANOCOBALAMIN
  12. VITAMIN D3 [Concomitant]
     Active Substance: CHOLECALCIFEROL
  13. IRON [Concomitant]
     Active Substance: IRON

REACTIONS (1)
  - Glaucoma [None]

NARRATIVE: CASE EVENT DATE: 20190603
